FAERS Safety Report 7641232-9 (Version None)
Quarter: 2011Q3

REPORT INFORMATION
  Report Type: 
  Country: None (occurrence: None)
  Receive Date: 20110728
  Receipt Date: 20110726
  Transmission Date: 20111222
  Serious: Yes (Death, Hospitalization, Other)
  Sender: FDA-Public Use
  Company Number: PHFR2010GB02148

PATIENT
  Sex: Male

DRUGS (2)
  1. CLOZAPINE [Suspect]
     Dosage: 500 MG, QD
     Route: 048
     Dates: end: 20110524
  2. CLOZAPINE [Suspect]
     Indication: SCHIZOPHRENIA
     Route: 048
     Dates: start: 20050617

REACTIONS (4)
  - LUNG NEOPLASM MALIGNANT [None]
  - VOMITING [None]
  - TERMINAL STATE [None]
  - DEATH [None]
